FAERS Safety Report 7406557-0 (Version None)
Quarter: 2011Q2

REPORT INFORMATION
  Report Type: 
  Country: None (occurrence: None)
  Receive Date: 20110401
  Receipt Date: 20110321
  Transmission Date: 20111010
  Serious: Yes (Hospitalization, Other)
  Sender: FDA-Public Use
  Company Number: 2523595-2011-00012

PATIENT
  Age: 60 Year
  Sex: Female

DRUGS (2)
  1. ETANERCEPT [Concomitant]
  2. UVADEX [Suspect]
     Dosage: PER ECP TREATMENT
     Dates: start: 20101028, end: 20110303

REACTIONS (2)
  - ASTHENIA [None]
  - POLYNEUROPATHY CHRONIC [None]
